FAERS Safety Report 8799421 (Version 1)
Quarter: 2012Q4

REPORT INFORMATION
  Report Type: Spontaneous
  Country: GB (occurrence: None)
  Receive Date: 20120914
  Receipt Date: 20120914
  Transmission Date: 20130627
  Serious: Yes (Other)
  Sender: FDA-Public Use
  Company Number: GB-DEXPHARM-20121221

PATIENT
  Sex: Male

DRUGS (2)
  1. MADOPAR [Suspect]
     Indication: DRUG USE FOR UNKNOWN INDICATION
     Dosage: sep.dosage/interval: 4 in 1 day
  2. OMEPRAZOLE [Suspect]
     Indication: REFLUX GASTRITIS
     Dosage: 2 DF dosage fpr, sep. dosages/interval 1 day

REACTIONS (3)
  - Drug interaction [None]
  - Cardiac disorder [None]
  - Drug effect decreased [None]
